FAERS Safety Report 26078200 (Version 3)
Quarter: 2025Q4

REPORT INFORMATION
  Report Type: Spontaneous
  Country: JP (occurrence: JP)
  Receive Date: 20251122
  Receipt Date: 20251214
  Transmission Date: 20260117
  Serious: Yes (Life-Threatening, Hospitalization)
  Sender: AMGEN
  Company Number: JP-AMGEN-JPNSP2025228770

PATIENT
  Age: 58 Year
  Sex: Female

DRUGS (2)
  1. EVENITY [Suspect]
     Active Substance: ROMOSOZUMAB-AQQG
     Indication: Osteoporosis
     Dosage: 210 MILLIGRAM
     Route: 058
     Dates: start: 20250927
  2. IMEGLIMIN HYDROCHLORIDE [Suspect]
     Active Substance: IMEGLIMIN HYDROCHLORIDE
     Indication: Product used for unknown indication
     Dosage: 500 MILLIGRAM
     Route: 065

REACTIONS (12)
  - Urticaria [Unknown]
  - Erythema [Unknown]
  - Epistaxis [Unknown]
  - Pyrexia [Unknown]
  - Skin swelling [Unknown]
  - Dizziness [Unknown]
  - Malaise [Unknown]
  - Dysstasia [Unknown]
  - Anxiety [Unknown]
  - Altered state of consciousness [Unknown]
  - Skin exfoliation [Unknown]
  - Nasal mucosal disorder [Unknown]

NARRATIVE: CASE EVENT DATE: 20251101
